FAERS Safety Report 4782808-6 (Version None)
Quarter: 2005Q3

REPORT INFORMATION
  Report Type: 
  Country: None (occurrence: None)
  Receive Date: 20050929
  Receipt Date: 20050923
  Transmission Date: 20060218
  Serious: Yes (Other)
  Sender: FDA-Public Use
  Company Number: PHBS2005IN14122

PATIENT
  Age: 22 Year
  Sex: Female

DRUGS (3)
  1. NIFEDIPINE [Suspect]
     Indication: PREGNANCY INDUCED HYPERTENSION
  2. METHYLDOPA [Suspect]
     Indication: PREGNANCY INDUCED HYPERTENSION
  3. OXYTOCIN [Suspect]
     Indication: LABOUR INDUCTION

REACTIONS (4)
  - CAESAREAN SECTION [None]
  - PREMATURE BABY [None]
  - PREMATURE RUPTURE OF MEMBRANES [None]
  - VAGINAL HAEMORRHAGE [None]
